FAERS Safety Report 4365308-7 (Version None)
Quarter: 2004Q2

REPORT INFORMATION
  Report Type: 
  Country: None (occurrence: None)
  Receive Date: 20040525
  Receipt Date: 20040209
  Transmission Date: 20050107
  Serious: No
  Sender: FDA-Public Use
  Company Number: PHEH2004US01821

PATIENT
  Age: 48 Year
  Sex: Female
  Weight: 91.6 kg

DRUGS (1)
  1. ZELNORM [Suspect]
     Dosage: 6 MG, BID; 6 MG, QD
     Route: 048

REACTIONS (3)
  - DYSPEPSIA [None]
  - INSOMNIA [None]
  - THINKING ABNORMAL [None]
